FAERS Safety Report 21694021 (Version 1)
Quarter: 2022Q4

REPORT INFORMATION
  Report Type: Spontaneous
  Country: US (occurrence: US)
  Receive Date: 20221207
  Receipt Date: 20221207
  Transmission Date: 20230113
  Serious: Yes (Death)
  Sender: FDA-Public Use
  Company Number: US-RECORDATI RARE DISEASE INC.-2022006418

PATIENT
  Age: 40 Year
  Sex: Male

DRUGS (2)
  1. METHAMPHETAMINE [Suspect]
     Active Substance: METHAMPHETAMINE
     Indication: Product used for unknown indication
  2. LIDOCAINE [Concomitant]
     Active Substance: LIDOCAINE
     Indication: Product used for unknown indication
     Route: 065

REACTIONS (1)
  - Toxicity to various agents [Fatal]
